FAERS Safety Report 22639135 (Version 2)
Quarter: 2023Q2

REPORT INFORMATION
  Report Type: Spontaneous
  Country: NL (occurrence: NL)
  Receive Date: 20230626
  Receipt Date: 20230626
  Transmission Date: 20230722
  Serious: Yes (Other)
  Sender: FDA-Public Use
  Company Number: None

PATIENT
  Sex: Male
  Weight: 80 kg

DRUGS (6)
  1. CITALOPRAM HYDROBROMIDE [Suspect]
     Active Substance: CITALOPRAM HYDROBROMIDE
     Indication: Restlessness
     Dosage: UNK,  UNK (1X PER DAG 08.00 UUR)
     Dates: start: 20211110
  2. QUETIAPINE FUMARATE [Suspect]
     Active Substance: QUETIAPINE FUMARATE
     Indication: Restlessness
     Dosage: 25 MG, ONCE PER DAY
     Dates: start: 20220330
  3. QUETIAPINE FUMARATE [Suspect]
     Active Substance: QUETIAPINE FUMARATE
     Dosage: 100 MG, 2 TIMES PER DAY (2X PER DAG 100 MG 08.00 + 17.00 +1X 25 MG. 17.00)
     Dates: start: 20220330
  4. LORAZEPAM [Suspect]
     Active Substance: LORAZEPAM
     Indication: Restlessness
     Dosage: 1 MG,  UNK
     Dates: start: 20201215
  5. MIDAZOLAM [Suspect]
     Active Substance: MIDAZOLAM
     Indication: Sleep disorder
     Dosage: UNK,  UNK (IEDERE AVOND VOOR HET SLAPEN MAX 2 X PER NACHT)
     Dates: start: 20220303
  6. ASPIRIN [Suspect]
     Active Substance: ASPIRIN
     Indication: Headache
     Dosage: UNK,  UNK (MAXIMAAL 4X PER DAG 1000 MG)
     Dates: start: 20211123

REACTIONS (2)
  - Vomiting [Not Recovered/Not Resolved]
  - Fall [Not Recovered/Not Resolved]
